FAERS Safety Report 13896473 (Version 1)
Quarter: 2017Q3

REPORT INFORMATION
  Report Type: Spontaneous
  Country: US (occurrence: None)
  Receive Date: 20170816
  Receipt Date: 20170816
  Transmission Date: 20171127
  Serious: No
  Sender: FDA-Public Use
  Company Number: None

PATIENT
  Age: 38 Year
  Sex: Male
  Weight: 117.03 kg

DRUGS (3)
  1. DIVALPROEX [Suspect]
     Active Substance: DIVALPROEX SODIUM
     Indication: POST-TRAUMATIC STRESS DISORDER
     Dosage: 2000 MG PM PO
     Route: 048
     Dates: start: 20160603, end: 20170403
  2. DIVALPROEX [Suspect]
     Active Substance: DIVALPROEX SODIUM
     Indication: INSOMNIA
     Dosage: 2000 MG PM PO
     Route: 048
     Dates: start: 20160603, end: 20170403
  3. DIVALPROEX [Suspect]
     Active Substance: DIVALPROEX SODIUM
     Indication: SCHIZOAFFECTIVE DISORDER
     Dosage: 2000 MG PM PO
     Route: 048
     Dates: start: 20160603, end: 20170403

REACTIONS (2)
  - Urinary retention [None]
  - Urinary hesitation [None]

NARRATIVE: CASE EVENT DATE: 20170201
